FAERS Safety Report 5872378-3 (Version None)
Quarter: 2008Q3

REPORT INFORMATION
  Report Type: 
  Country: None (occurrence: None)
  Receive Date: 20080902
  Receipt Date: 20080618
  Transmission Date: 20090109
  Serious: Yes (Hospitalization)
  Sender: FDA-Public Use
  Company Number: 2008S1006445

PATIENT
  Age: 72 Year
  Sex: Female

DRUGS (1)
  1. PHOSPHORAL (SODIUM PHOSPHATE DIBASIC / SODIUM PHOSPHATE MONOBASIC (ANH [Suspect]
     Dosage: 90 ML,
     Dates: start: 20070806, end: 20070807

REACTIONS (1)
  - BLOOD CREATININE INCREASED [None]
